FAERS Safety Report 25386808 (Version 1)
Quarter: 2025Q2

REPORT INFORMATION
  Report Type: Spontaneous
  Country: IT (occurrence: IT)
  Receive Date: 20250602
  Receipt Date: 20250602
  Transmission Date: 20250716
  Serious: Yes (Other)
  Sender: AMGEN
  Company Number: IT-AMGEN-ITASP2025104437

PATIENT

DRUGS (2)
  1. BEVACIZUMAB [Suspect]
     Active Substance: BEVACIZUMAB
     Indication: Neovascular age-related macular degeneration
  2. BROLUCIZUMAB [Suspect]
     Active Substance: BROLUCIZUMAB
     Indication: Neovascular age-related macular degeneration

REACTIONS (9)
  - Retinal haemorrhage [Unknown]
  - Hypertensive crisis [Unknown]
  - Drug ineffective for unapproved indication [Unknown]
  - Eye inflammation [Recovered/Resolved]
  - Periorbital pain [Unknown]
  - Corneal oedema [Unknown]
  - Intraocular pressure increased [Recovered/Resolved]
  - Off label use [Unknown]
  - Vision blurred [Unknown]
